FAERS Safety Report 25246098 (Version 1)
Quarter: 2025Q2

REPORT INFORMATION
  Report Type: Spontaneous
  Country: CA (occurrence: CA)
  Receive Date: 20250428
  Receipt Date: 20250428
  Transmission Date: 20250717
  Serious: Yes (Death)
  Sender: PFIZER
  Company Number: CA-PFIZER INC-202500087640

PATIENT
  Age: 63 Year
  Sex: Male

DRUGS (5)
  1. HYDROMORPHONE HYDROCHLORIDE [Suspect]
     Active Substance: HYDROMORPHONE HYDROCHLORIDE
     Route: 065
  2. CAFFEINE [Suspect]
     Active Substance: CAFFEINE
     Route: 065
  3. FENTANYL [Suspect]
     Active Substance: FENTANYL
     Route: 065
  4. MORPHINE [Suspect]
     Active Substance: MORPHINE
     Route: 065
  5. NARCAN [Suspect]
     Active Substance: NALOXONE HYDROCHLORIDE
     Route: 065

REACTIONS (1)
  - Toxicity to various agents [Fatal]
